FAERS Safety Report 8176416-7 (Version None)
Quarter: 2012Q1

REPORT INFORMATION
  Report Type: 
  Country: None (occurrence: None)
  Receive Date: 20120228
  Receipt Date: 20120216
  Transmission Date: 20120608
  Serious: Yes (Other)
  Sender: FDA-Public Use
  Company Number: 2012SP009037

PATIENT
  Sex: Female

DRUGS (3)
  1. PEG-INTRON [Suspect]
     Indication: HEPATITIS C
     Dates: start: 20111208
  2. VICTRELIS [Suspect]
     Indication: HEPATITIS C
     Dates: start: 20120105
  3. RIBAVIRIN [Suspect]
     Indication: HEPATITIS C
     Dates: start: 20111208

REACTIONS (4)
  - RASH [None]
  - INFLUENZA LIKE ILLNESS [None]
  - PRURITUS GENERALISED [None]
  - BLOOD THYROID STIMULATING HORMONE INCREASED [None]
